FAERS Safety Report 15709778 (Version 1)
Quarter: 2018Q4

REPORT INFORMATION
  Report Type: Spontaneous
  Country: SI (occurrence: SI)
  Receive Date: 20181211
  Receipt Date: 20181211
  Transmission Date: 20190205
  Serious: Yes (Hospitalization)
  Sender: FDA-Public Use
  Company Number: SI-MYLANLABS-2018M1091723

PATIENT
  Age: 69 Year
  Sex: Female

DRUGS (1)
  1. CIPROFLOXACIN. [Suspect]
     Active Substance: CIPROFLOXACIN
     Indication: MENINGOENCEPHALITIS BACTERIAL
     Dosage: 500 MILLIGRAM, BID (Q12H)
     Route: 065

REACTIONS (4)
  - Chills [Unknown]
  - Blood urine present [Unknown]
  - Pyrexia [Unknown]
  - Therapy non-responder [Unknown]
